FAERS Safety Report 4970795-7 (Version None)
Quarter: 2006Q2

REPORT INFORMATION
  Report Type: 
  Country: None (occurrence: None)
  Receive Date: 20060411
  Receipt Date: 20060411
  Transmission Date: 20061013
  Serious: Yes (Hospitalization)
  Sender: FDA-Public Use
  Company Number: None

PATIENT
  Age: 67 Year
  Sex: Male
  Weight: 49.1 kg

DRUGS (1)
  1. IMIPENEM [Suspect]
     Indication: SERRATIA BACTERAEMIA
     Dosage: 500MG, 250MGQ12, INTRAVEN
     Route: 042
     Dates: start: 20051231, end: 20060103

REACTIONS (1)
  - THROMBOCYTOPENIA [None]
